FAERS Safety Report 4890107-7 (Version None)
Quarter: 2005Q4

REPORT INFORMATION
  Report Type: 
  Country: None (occurrence: None)
  Receive Date: 20051215
  Receipt Date: 20041230
  Transmission Date: 20060501
  Serious: Yes (Other)
  Sender: FDA-Public Use
  Company Number: 2004241518US

PATIENT
  Age: 70 Year
  Sex: Female

DRUGS (4)
  1. BEXTRA [Suspect]
     Indication: ARTHRITIS
     Dosage: 10 MG (1 IN 1 D), ORAL
     Route: 048
     Dates: start: 20020701
  2. CARVEDILOL [Concomitant]
  3. AMLODIPINE BESYLATE [Concomitant]
  4. KARVEA HCT (HYDROCHLOROTHIAZIDE, IRBESARTAN) [Concomitant]

REACTIONS (4)
  - BACK PAIN [None]
  - CARDIAC FAILURE CONGESTIVE [None]
  - SHOULDER PAIN [None]
  - WEIGHT INCREASED [None]
